FAERS Safety Report 7988907-X (Version None)
Quarter: 2011Q4

REPORT INFORMATION
  Report Type: 
  Country: None (occurrence: None)
  Receive Date: 20111215
  Receipt Date: 20111215
  Transmission Date: 20120403
  Serious: Yes (Hospitalization)
  Sender: FDA-Public Use
  Company Number: None

PATIENT
  Sex: Female
  Weight: 63.5036 kg

DRUGS (1)
  1. BONIVA [Suspect]
     Indication: OSTEOPOROSIS
     Dosage: EVERY 3 HRS IV
     Route: 042

REACTIONS (3)
  - OSTEONECROSIS OF JAW [None]
  - ABSCESS [None]
  - OSTEOMYELITIS [None]
